FAERS Safety Report 17841315 (Version 1)
Quarter: 2020Q2

REPORT INFORMATION
  Report Type: Report from Study
  Country: US (occurrence: US)
  Receive Date: 20200529
  Receipt Date: 20200529
  Transmission Date: 20200714
  Serious: Yes (Other)
  Sender: FDA-Public Use
  Company Number: US-ROCHE-2604041

PATIENT
  Age: 55 Year
  Sex: Male
  Weight: 114.86 kg

DRUGS (4)
  1. CITALOPRAM [Concomitant]
     Active Substance: CITALOPRAM HYDROBROMIDE
     Indication: SEDATION
     Dosage: ONGOING: YES
     Route: 065
  2. VITAMIN B12 [VITAMIN B12 NOS] [Concomitant]
     Active Substance: CYANOCOBALAMIN
     Dosage: ONGOING: YES
     Route: 065
  3. VITAMIN D [VITAMIN D NOS] [Concomitant]
     Active Substance: VITAMIN D NOS
     Dosage: ONGOING: YES
     Route: 065
  4. OCREVUS [Suspect]
     Active Substance: OCRELIZUMAB
     Indication: RELAPSING-REMITTING MULTIPLE SCLEROSIS
     Dosage: ONGOING: YES
     Route: 042
     Dates: start: 20170201

REACTIONS (3)
  - Hypoaesthesia [Not Recovered/Not Resolved]
  - Hypersensitivity [Unknown]
  - Herpes zoster [Recovered/Resolved]

NARRATIVE: CASE EVENT DATE: 201702
